FAERS Safety Report 17286563 (Version 1)
Quarter: 2020Q1

REPORT INFORMATION
  Report Type: Spontaneous
  Country: US (occurrence: US)
  Receive Date: 20191230
  Receipt Date: 20191230
  Transmission Date: 20200409
  Serious: No
  Sender: FDA-Public Use
  Company Number: None

PATIENT
  Age: 57 Year
  Sex: Female
  Weight: 60.4 kg

DRUGS (2)
  1. GALCANEZUMAB 125MG [Suspect]
     Active Substance: GALCANEZUMAB
  2. GALCANEZUMAB 250 MG [Suspect]
     Active Substance: GALCANEZUMAB

REACTIONS (2)
  - Abdominal distension [None]
  - Diarrhoea [None]

NARRATIVE: CASE EVENT DATE: 20191122
